FAERS Safety Report 6409360-3 (Version None)
Quarter: 2009Q4

REPORT INFORMATION
  Report Type: 
  Country: None (occurrence: None)
  Receive Date: 20091021
  Receipt Date: 20091019
  Transmission Date: 20100525
  Serious: Yes (Hospitalization)
  Sender: FDA-Public Use
  Company Number: IT-WYE-G04654609

PATIENT
  Sex: Male

DRUGS (7)
  1. TORISEL [Suspect]
     Indication: RENAL NEOPLASM
     Route: 042
     Dates: start: 20090630, end: 20090630
  2. SOLDESAM [Concomitant]
     Dosage: 8 MG
  3. ORAMORPH SR [Concomitant]
  4. DURAGESIC-100 [Concomitant]
     Dosage: NOT PROVIDED
     Route: 059
  5. LASIX [Concomitant]
  6. KETOROLAC TROMETHAMINE [Concomitant]
  7. MEPRAL [Concomitant]
     Dosage: 20 MG
     Route: 048

REACTIONS (5)
  - ACINETOBACTER INFECTION [None]
  - CELLULITIS [None]
  - DEEP VEIN THROMBOSIS [None]
  - DIABETES MELLITUS [None]
  - PULMONARY EMBOLISM [None]
